FAERS Safety Report 15833593 (Version 1)
Quarter: 2019Q1

REPORT INFORMATION
  Report Type: Report from Study
  Country: FR (occurrence: FR)
  Receive Date: 20190116
  Receipt Date: 20190116
  Transmission Date: 20190417
  Serious: Yes (Other)
  Sender: FDA-Public Use
  Company Number: FR-MYLANLABS-2019M1003360

PATIENT
  Age: 64 Year
  Sex: Female
  Weight: 60 kg

DRUGS (4)
  1. QIZENDAY [Suspect]
     Active Substance: BIOTIN
     Indication: PROGRESSIVE MULTIPLE SCLEROSIS
     Dosage: 100 MG X 3
     Route: 048
     Dates: start: 201711
  2. LIORESAL [Concomitant]
     Active Substance: BACLOFEN
     Indication: MUSCLE SPASTICITY
     Dosage: 6 DOSAGE FORM, QD
  3. VESICARE [Concomitant]
     Active Substance: SOLIFENACIN SUCCINATE
     Indication: BLADDER SPHINCTER ATONY
     Dosage: 5 MILLIGRAM, QD
  4. METHOTREXATE. [Suspect]
     Active Substance: METHOTREXATE
     Indication: PROGRESSIVE MULTIPLE SCLEROSIS
     Dosage: 2.5 MG X 3
     Route: 065
     Dates: end: 20180209

REACTIONS (3)
  - Bile duct stone [Recovered/Resolved]
  - Cholestasis [Recovered/Resolved]
  - Cell death [Recovered/Resolved]

NARRATIVE: CASE EVENT DATE: 201802
